FAERS Safety Report 25801817 (Version 1)
Quarter: 2025Q3

REPORT INFORMATION
  Report Type: Spontaneous
  Country: US (occurrence: None)
  Receive Date: 20250912
  Receipt Date: 20250912
  Transmission Date: 20251020
  Serious: Yes (Hospitalization)
  Sender: FDA-CTU
  Company Number: None

PATIENT
  Age: 25 Year
  Sex: Male
  Weight: 65.25 kg

DRUGS (1)
  1. DUPIXENT [Suspect]
     Active Substance: DUPILUMAB

REACTIONS (5)
  - Dyspnoea [None]
  - Wheezing [None]
  - Cough [None]
  - Heart rate increased [None]
  - Eyelid disorder [None]

NARRATIVE: CASE EVENT DATE: 20250822
